FAERS Safety Report 10061944 (Version 2)
Quarter: 2014Q2

REPORT INFORMATION
  Report Type: Spontaneous
  Country: DE (occurrence: DE)
  Receive Date: 20140407
  Receipt Date: 20140522
  Transmission Date: 20141212
  Serious: Yes (Other)
  Sender: FDA-Public Use
  Company Number: DE-ASTELLAS-2014EU003591

PATIENT
  Age: 18 Year
  Sex: Female

DRUGS (2)
  1. PROGRAF [Suspect]
     Indication: LIVER TRANSPLANT
     Route: 065
  2. PROGRAF [Suspect]
     Indication: RENAL TRANSPLANT
     Route: 065

REACTIONS (6)
  - Polyneuropathy [Recovering/Resolving]
  - Mental status changes [Recovering/Resolving]
  - Acute respiratory failure [Recovering/Resolving]
  - Cardiac failure [Recovering/Resolving]
  - Lactic acidosis [Recovering/Resolving]
  - Vitamin B1 deficiency [Recovering/Resolving]
